FAERS Safety Report 18040696 (Version 1)
Quarter: 2020Q3

REPORT INFORMATION
  Report Type: Spontaneous
  Country: US (occurrence: US)
  Receive Date: 20200717
  Receipt Date: 20200717
  Transmission Date: 20201103
  Serious: No
  Sender: FDA-Public Use
  Company Number: US-NEXGEN PHARMA, INC.-2087481

PATIENT
  Age: 72 Year
  Sex: Female

DRUGS (1)
  1. CHENODAL [Suspect]
     Active Substance: CHENODIOL
     Indication: BILE DUCT STONE
     Route: 048
     Dates: start: 20200515

REACTIONS (3)
  - Productive cough [Recovering/Resolving]
  - Headache [Recovering/Resolving]
  - SARS-CoV-2 antibody test positive [Recovered/Resolved]
